FAERS Safety Report 4413090-7 (Version None)
Quarter: 2004Q3

REPORT INFORMATION
  Report Type: 
  Country: None (occurrence: None)
  Receive Date: 20040802
  Receipt Date: 20040802
  Transmission Date: 20050211
  Serious: Yes (Disabling)
  Sender: FDA-Public Use
  Company Number: None

PATIENT
  Sex: Male
  Weight: 72.5755 kg

DRUGS (2)
  1. LIPITOR [Suspect]
     Indication: HYPERCHOLESTEROLAEMIA
     Dosage: 10 TO 20 MG 1 PER DAY ORAL
     Route: 048
     Dates: start: 20030205, end: 20040415
  2. LOTREL [Concomitant]

REACTIONS (1)
  - AMNESIA [None]
